FAERS Safety Report 8767543 (Version 1)
Quarter: 2012Q4

REPORT INFORMATION
  Report Type: 
  Country: FR (occurrence: FR)
  Receive Date: 20120904
  Receipt Date: 20120904
  Transmission Date: 20130627
  Serious: Yes (Other)
  Sender: FDA-Public Use
  Company Number: FR-ACTELION-A-CH2012-70705

PATIENT
  Age: 9 Year
  Sex: Female

DRUGS (2)
  1. ZAVESCA [Suspect]
     Indication: NIEMANN-PICK DISEASE
     Dosage: UNK
     Route: 048
  2. ZAVESCA [Suspect]
     Dosage: 400 mg, qd
     Route: 048

REACTIONS (2)
  - Epilepsy [Recovering/Resolving]
  - Dysphagia [Unknown]
